FAERS Safety Report 9421413 (Version 2)
Quarter: 2013Q3

REPORT INFORMATION
  Report Type: Spontaneous
  Country: US (occurrence: US)
  Receive Date: 20130725
  Receipt Date: 20130923
  Transmission Date: 20140515
  Serious: No
  Sender: FDA-Public Use
  Company Number: US-B.I. PHARMACEUTICALS,INC./RIDGEFIELD-2013-BI-21518BP

PATIENT
  Age: 79 Year
  Sex: Female
  Weight: 54 kg

DRUGS (2)
  1. ATROVENT INHALATION SOLUTION [Suspect]
     Indication: EMPHYSEMA
     Dosage: 134 MCG
     Route: 055
     Dates: start: 2008
  2. ALBUTEROL [Concomitant]
     Indication: PROPHYLAXIS
     Dosage: (INHALATION AEROSOL)
     Route: 055

REACTIONS (2)
  - Dyspnoea [Not Recovered/Not Resolved]
  - Product quality issue [Unknown]
